FAERS Safety Report 8811149 (Version 1)
Quarter: 2012Q4

REPORT INFORMATION
  Report Type: Spontaneous
  Country: JP (occurrence: None)
  Receive Date: 20120921
  Receipt Date: 20120921
  Transmission Date: 20130627
  Serious: Yes (Other)
  Sender: FDA-Public Use
  Company Number: MIN-00868

PATIENT
  Age: 49 Year
  Sex: Male

DRUGS (4)
  1. MINOCYCLINE [Suspect]
     Indication: RHEUMATOID ARTHRITIS
  2. METHOTREXATE [Suspect]
  3. SALAZOSULFADIMIDINE [Suspect]
  4. PREDNISOLONE [Suspect]

REACTIONS (3)
  - Pigmentation disorder [None]
  - Knee arthroplasty [None]
  - Bone hyperpigmentation [None]
